FAERS Safety Report 11206693 (Version 1)
Quarter: 2015Q2

REPORT INFORMATION
  Report Type: Report from Study
  Country: US (occurrence: US)
  Receive Date: 20150622
  Receipt Date: 20150622
  Transmission Date: 20150821
  Serious: No
  Sender: FDA-Public Use
  Company Number: US-ABBVIE-15P-163-1373577-00

PATIENT
  Age: 66 Year
  Sex: Female

DRUGS (3)
  1. STEROID [Concomitant]
     Active Substance: UNSPECIFIED INGREDIENT
     Indication: COUGH
  2. VIEKIRA PAK [Suspect]
     Active Substance: DASABUVIR\OMBITASVIR\PARITAPREVIR\RITONAVIR
     Indication: HEPATITIS C
     Dosage: 2 PINK TAB AM 1 BEIGE TAB PM
     Route: 048
     Dates: start: 20150207
  3. ANTIBIOTIC [Concomitant]
     Active Substance: UNSPECIFIED INGREDIENT
     Indication: COUGH

REACTIONS (4)
  - Constipation [Unknown]
  - Cough [Unknown]
  - Bronchitis [Unknown]
  - Pruritus [Unknown]

NARRATIVE: CASE EVENT DATE: 201503
